FAERS Safety Report 7385465-8 (Version None)
Quarter: 2011Q1

REPORT INFORMATION
  Report Type: 
  Country: None (occurrence: None)
  Receive Date: 20110330
  Receipt Date: 20110126
  Transmission Date: 20110831
  Serious: Yes (Other)
  Sender: FDA-Public Use
  Company Number: US-AMGEN-USASP2011005204

PATIENT
  Age: 64 Year
  Sex: Male
  Weight: 80.9 kg

DRUGS (2)
  1. NPLATE [Suspect]
     Dosage: 2 A?G/KG, UNK
     Dates: start: 20100728, end: 20100915
  2. CORTICOSTEROID NOS [Suspect]

REACTIONS (1)
  - DRUG INEFFECTIVE [None]
